FAERS Safety Report 7707842 (Version 4)
Quarter: 2014Q1

REPORT INFORMATION
  Report Type: Spontaneous
  Country: US (occurrence: US)
  Receive Date: 20101214
  Receipt Date: 20140117
  Transmission Date: 20141002
  Serious: No
  Sender: FDA-Public Use
  Company Number: US-PFIZER INC-2010160835

PATIENT
  Age: 59 Year
  Sex: Female
  Weight: 75.28 kg

DRUGS (17)
  1. GENOTROPIN MQ [Suspect]
     Indication: HYPOPITUITARISM
     Dosage: 0.2 MG, 6X/WEEK
     Route: 058
  2. GENOTROPIN MQ [Suspect]
     Dosage: 0.6 MG, 5X/WEEK THEN 3X/WEEK
     Route: 058
     Dates: start: 201008, end: 20101128
  3. GENOTROPIN MQ [Suspect]
     Dosage: 0.2 MG, 6X/WEEK
     Route: 058
  4. LIOTHYRONINE [Concomitant]
     Indication: THYROID DISORDER
     Dosage: 5 UG, 1X/DAY
  5. LIOTHYRONINE [Concomitant]
     Dosage: UNK
  6. LEVOTHYROXINE [Concomitant]
     Indication: THYROID DISORDER
     Dosage: 88 UG, 1X/DAY
  7. LEVOTHYROXINE [Concomitant]
     Dosage: UNK
  8. SERRAPEPTASE [Concomitant]
     Indication: DYSPEPSIA
     Dosage: 20000 MG, 1X/DAY
     Dates: start: 200909
  9. ESTROGENS [Concomitant]
  10. VITAMIN C [Concomitant]
     Dosage: 250 MG, UNK
  11. VITAMIN D [Concomitant]
     Dosage: 50000 UNT
  12. CHROMIUM PICOLINATE [Concomitant]
     Dosage: 200 UG, UNK
  13. MAGNESIUM [Concomitant]
     Dosage: 250 MG, UNK
  14. ESTRADIOL [Concomitant]
     Dosage: UNK
  15. PHOSLO [Concomitant]
     Dosage: 667 MG, UNK
  16. CALCIUM W/MAGNESIUM [Concomitant]
     Dosage: UNK
  17. LIPOIC ACID [Concomitant]
     Dosage: 100 MG, UNK

REACTIONS (7)
  - Palpitations [Unknown]
  - Pain in extremity [Unknown]
  - Pollakiuria [Unknown]
  - Abdominal discomfort [Unknown]
  - Depression [Unknown]
  - Crepitations [Unknown]
  - Fatigue [Unknown]
